FAERS Safety Report 7391758-0 (Version None)
Quarter: 2011Q2

REPORT INFORMATION
  Report Type: 
  Country: None (occurrence: None)
  Receive Date: 20110404
  Receipt Date: 20100917
  Transmission Date: 20111010
  Serious: Yes (Hospitalization, Other)
  Sender: FDA-Public Use
  Company Number: US-ROCHE-728181

PATIENT
  Sex: Female
  Weight: 59 kg

DRUGS (4)
  1. DARUNAVIR [Suspect]
     Indication: HIV INFECTION
     Dosage: LAST DOSE: 11 SEP 2010.
     Route: 048
     Dates: start: 20100908
  2. ETRAVIRINE [Suspect]
     Indication: HIV INFECTION
     Dosage: DATE OF LAST DOSE: 11 SEP 2010.
     Route: 048
     Dates: start: 20100908
  3. ENFUVIRTIDE [Suspect]
     Indication: HIV INFECTION
     Dosage: LAST DOSE PRIOR TO SAE: 11 SEP 2010.
     Route: 058
     Dates: start: 20100908
  4. MARAVIROC [Suspect]
     Indication: HIV INFECTION
     Dosage: LAST DOSE: 11 SEP 2010.
     Route: 048
     Dates: start: 20100908

REACTIONS (2)
  - BRONCHITIS [None]
  - ANAEMIA [None]
